FAERS Safety Report 7731804-5 (Version None)
Quarter: 2011Q3

REPORT INFORMATION
  Report Type: 
  Country: None (occurrence: None)
  Receive Date: 20110906
  Receipt Date: 20110825
  Transmission Date: 20111222
  Serious: Yes (Hospitalization)
  Sender: FDA-Public Use
  Company Number: US-JNJFOC-20100404265

PATIENT
  Sex: Male
  Weight: 47.8 kg

DRUGS (25)
  1. ZOSYN [Concomitant]
  2. INFLIXIMAB [Suspect]
     Indication: CROHN'S DISEASE
     Dosage: PRIOR TO REGISTRY
     Route: 042
     Dates: start: 20051103, end: 20090429
  3. METHOTREXATE [Suspect]
     Indication: CROHN'S DISEASE
  4. CHLORHEXIDINE GLUCONATE [Concomitant]
  5. HUMIRA [Suspect]
     Indication: CROHN'S DISEASE
     Dates: start: 20090512, end: 20100324
  6. RIFAXIMIN [Concomitant]
  7. SCOPOLAMINE [Concomitant]
  8. PREDNISONE [Suspect]
     Indication: CROHN'S DISEASE
  9. FERROUS SULFATE TAB [Concomitant]
  10. CHOLECALCIFEROL [Concomitant]
  11. IMODIUM [Concomitant]
  12. MIRALAX [Concomitant]
  13. ZANTAC [Concomitant]
  14. FLUCONAZOLE [Concomitant]
  15. BENADRYL [Concomitant]
  16. CALCIUM CARBONATE [Concomitant]
  17. FOLIC ACID [Concomitant]
  18. MORPHINE [Concomitant]
  19. ATIVAN [Concomitant]
  20. PEPTAMEN [Concomitant]
  21. COTRIM [Concomitant]
  22. NALBUPHINE [Concomitant]
  23. CYTARABINE [Concomitant]
  24. VANCOMYCIN [Concomitant]
  25. ZOFRAN [Concomitant]

REACTIONS (3)
  - TRANSFUSION REACTION [None]
  - ACUTE MONOCYTIC LEUKAEMIA [None]
  - MULTI-ORGAN FAILURE [None]
